FAERS Safety Report 20417891 (Version 3)
Quarter: 2022Q1

REPORT INFORMATION
  Report Type: Spontaneous
  Country: US (occurrence: US)
  Receive Date: 20220202
  Receipt Date: 20220210
  Transmission Date: 20220423
  Serious: No
  Sender: FDA-Public Use
  Company Number: US-SA-SAC20220127000880

PATIENT
  Age: 23 Year
  Sex: Male

DRUGS (1)
  1. DUPIXENT [Suspect]
     Active Substance: DUPILUMAB
     Indication: Nasal polyps
     Dosage: 300 MG, QOW
     Route: 058
     Dates: start: 202109

REACTIONS (18)
  - Injection site pain [Unknown]
  - Injection site erythema [Unknown]
  - Injection site swelling [Unknown]
  - Rhinorrhoea [Recovered/Resolved]
  - Ear pain [Unknown]
  - Condition aggravated [Unknown]
  - Ear discomfort [Unknown]
  - Condition aggravated [Unknown]
  - COVID-19 [Unknown]
  - Rhinorrhoea [Unknown]
  - Cerebral congestion [Unknown]
  - Respiratory disorder [Unknown]
  - Condition aggravated [Unknown]
  - Cough [Unknown]
  - Sneezing [Unknown]
  - Pain [Unknown]
  - Incorrect dose administered by product [Unknown]
  - Product use in unapproved indication [Unknown]

NARRATIVE: CASE EVENT DATE: 20210101
